FAERS Safety Report 8843669 (Version 1)
Quarter: 2012Q4

REPORT INFORMATION
  Report Type: 
  Country: DE (occurrence: DE)
  Receive Date: 20121016
  Receipt Date: 20121016
  Transmission Date: 20130627
  Serious: Yes (Hospitalization)
  Sender: FDA-Public Use
  Company Number: DE-PFIZER INC-2012251724

PATIENT
  Age: 59 Year
  Sex: Male
  Weight: 106 kg

DRUGS (9)
  1. GENOTROPIN [Suspect]
     Dosage: 0.4 mg, 7/wk
     Route: 058
     Dates: start: 20061130
  2. LEVOTHYROXINE [Concomitant]
     Indication: HYPOTHALAMO-PITUITARY DISORDER
     Dosage: UNK
     Dates: start: 20031123
  3. HYDROCORTISONE [Concomitant]
     Indication: HYPOTHALAMO-PITUITARY DISORDER
     Dosage: UNK
     Dates: start: 20031125
  4. ACERCOMP [Concomitant]
     Indication: ESSENTIAL HYPERTENSION
     Dosage: UNK
     Dates: start: 2006
  5. BISOPROLOL [Concomitant]
     Indication: ESSENTIAL HYPERTENSION
     Dosage: UNK
     Dates: start: 2006
  6. ASS [Concomitant]
     Indication: ESSENTIAL HYPERTENSION
     Dosage: UNK
     Dates: start: 2006
  7. SIMVASTATIN [Concomitant]
     Indication: TYPE V HYPERLIPIDAEMIA
     Dosage: UNK
     Dates: start: 2006
  8. AMLODIPIN [Concomitant]
     Indication: ESSENTIAL HYPERTENSION
     Dosage: UNK
     Dates: start: 20061201
  9. TESTOSTERONE [Concomitant]
     Indication: HYPOTHALAMO-PITUITARY DISORDER
     Dosage: UNK
     Dates: start: 20031123

REACTIONS (1)
  - Cardiac disorder [Unknown]
